FAERS Safety Report 7392661-2 (Version None)
Quarter: 2011Q1

REPORT INFORMATION
  Report Type: 
  Country: None (occurrence: None)
  Receive Date: 20110330
  Receipt Date: 20110330
  Transmission Date: 20110831
  Serious: Yes (Hospitalization, Other)
  Sender: FDA-Public Use
  Company Number: None

PATIENT
  Age: 59 Year
  Sex: Female
  Weight: 64.4108 kg

DRUGS (1)
  1. CLEOCIN [Suspect]
     Indication: URTICARIA
     Dosage: 300 MG 3 TIMES A DAY PO
     Route: 048
     Dates: start: 20110309, end: 20110317

REACTIONS (8)
  - HEADACHE [None]
  - WEIGHT DECREASED [None]
  - ABDOMINAL DISCOMFORT [None]
  - ARTHRALGIA [None]
  - CYST [None]
  - DIARRHOEA [None]
  - NERVOUSNESS [None]
  - DYSGEUSIA [None]
